FAERS Safety Report 7957279-9 (Version None)
Quarter: 2011Q4

REPORT INFORMATION
  Report Type: 
  Country: None (occurrence: None)
  Receive Date: 20111201
  Receipt Date: 20111116
  Transmission Date: 20120403
  Serious: Yes (Other)
  Sender: FDA-Public Use
  Company Number: FK201102730

PATIENT
  Age: 51 Year
  Sex: Female

DRUGS (3)
  1. PREDNISOLONE [Suspect]
     Indication: STEROID THERAPY
     Dosage: 60 MG, UNKNOWN
  2. CYCLOPHOSPHAMIDE [Concomitant]
  3. METHYLPREDNISOLONE [Suspect]
     Indication: STEROID THERAPY
     Dosage: 750 MG, X 3 DAYS, UNKNOWN

REACTIONS (2)
  - HYPEROSMOLAR STATE [None]
  - MYOCLONIC EPILEPSY [None]
